FAERS Safety Report 14658780 (Version 1)
Quarter: 2018Q1

REPORT INFORMATION
  Report Type: Spontaneous
  Country: FR (occurrence: FR)
  Receive Date: 20180320
  Receipt Date: 20180320
  Transmission Date: 20180509
  Serious: Yes (Death)
  Sender: FDA-Public Use
  Company Number: FR-MYLANLABS-2018M1018795

PATIENT
  Age: 92 Year
  Sex: Male
  Weight: 90 kg

DRUGS (12)
  1. LOXAPAC                            /00401801/ [Suspect]
     Active Substance: LOXAPINE
     Indication: AGITATION
     Dosage: UNK
     Route: 030
     Dates: end: 201707
  2. PERINDOPRIL [Concomitant]
     Active Substance: PERINDOPRIL
     Dosage: 4 MG, QD
     Route: 048
  3. LYSANXIA [Concomitant]
     Active Substance: PRAZEPAM
     Dosage: 6 GTT, QD
     Route: 048
  4. REPAGLINIDE. [Concomitant]
     Active Substance: REPAGLINIDE
     Dosage: 1 MG, QD
     Route: 048
  5. DIGOXINE NATIVELLE [Concomitant]
     Active Substance: DIGOXIN
     Dosage: 0.25 MG, QD
     Route: 048
  6. TIAPRIDAL [Suspect]
     Active Substance: TIAPRIDE HYDROCHLORIDE
     Indication: AGITATION
     Dosage: 30 GTT, QD
     Route: 048
     Dates: start: 20170205, end: 201707
  7. CLOZAPINE. [Suspect]
     Active Substance: CLOZAPINE
     Indication: DEMENTIA ALZHEIMER^S TYPE
     Dosage: 100 MG, UNK
     Route: 048
  8. MEMANTINE. [Concomitant]
     Active Substance: MEMANTINE
     Dosage: 20 MG, QD
     Route: 048
  9. PRADAXA [Concomitant]
     Active Substance: DABIGATRAN ETEXILATE MESYLATE
     Dosage: 220 MG, QD
     Route: 048
  10. LASILIX [Concomitant]
     Active Substance: FUROSEMIDE
     Dosage: 60 MG, QD
     Route: 048
  11. NORSET [Concomitant]
     Active Substance: MIRTAZAPINE
     Dosage: 15 MG, QD
     Route: 048
  12. CERIS [Concomitant]
     Active Substance: TROSPIUM CHLORIDE
     Dosage: 20 MG, QD
     Route: 048

REACTIONS (1)
  - Coma [Fatal]

NARRATIVE: CASE EVENT DATE: 20170706
